FAERS Safety Report 6983520-5 (Version None)
Quarter: 2010Q3

REPORT INFORMATION
  Report Type: 
  Country: None (occurrence: None)
  Receive Date: 20100914
  Receipt Date: 20080710
  Transmission Date: 20110219
  Serious: No
  Sender: FDA-Public Use
  Company Number: US-WYE-H05060108

PATIENT
  Sex: Female

DRUGS (1)
  1. ADVIL LIQUI-GELS [Suspect]
     Indication: ARTHRALGIA
     Dosage: 3 CAPLETS 3 TIMES DAILY PER PHYSICIAN RECOMMENDATION
     Route: 048
     Dates: start: 20080601, end: 20080706

REACTIONS (2)
  - DRUG WITHDRAWAL SYNDROME [None]
  - NAUSEA [None]
